FAERS Safety Report 20845390 (Version 1)
Quarter: 2022Q2

REPORT INFORMATION
  Report Type: Spontaneous
  Country: US (occurrence: None)
  Receive Date: 20220518
  Receipt Date: 20220518
  Transmission Date: 20220721
  Serious: Yes (Hospitalization)
  Sender: FDA-Public Use
  Company Number: None

PATIENT
  Age: 53 Year
  Sex: Male
  Weight: 85 kg

DRUGS (1)
  1. QUETIAPINE FUMARATE [Suspect]
     Active Substance: QUETIAPINE FUMARATE
     Dosage: FREQUENCY : AT BEDTIME;?
     Route: 048
     Dates: start: 20171115

REACTIONS (5)
  - Hypotension [None]
  - Intentional overdose [None]
  - Bradycardia [None]
  - Drug screen positive [None]
  - Lethargy [None]

NARRATIVE: CASE EVENT DATE: 20220505
